FAERS Safety Report 12540165 (Version 2)
Quarter: 2016Q3

REPORT INFORMATION
  Report Type: Spontaneous
  Country: FR (occurrence: FR)
  Receive Date: 20160708
  Receipt Date: 20160713
  Transmission Date: 20161109
  Serious: Yes (Hospitalization)
  Sender: FDA-Public Use
  Company Number: FR-PFIZER INC-2016327822

PATIENT
  Age: 50 Year
  Sex: Male

DRUGS (21)
  1. KEPPRA [Suspect]
     Active Substance: LEVETIRACETAM
     Dosage: 500 MG, 1X/DAY
     Route: 048
  2. ATROVENT [Suspect]
     Active Substance: IPRATROPIUM BROMIDE
     Dosage: UNK
     Route: 055
     Dates: start: 20160528
  3. ROVAMYCIN [Suspect]
     Active Substance: SPIRAMYCIN
     Dosage: UNK
     Dates: start: 20160528, end: 20160530
  4. TRIATEC /00116401/ [Concomitant]
     Active Substance: ACETAMINOPHEN\CODEINE PHOSPHATE
  5. FUROSEMIDE. [Concomitant]
     Active Substance: FUROSEMIDE
  6. PARACETAMOL [Concomitant]
     Active Substance: ACETAMINOPHEN
     Dosage: 1 G, 3X/DAY
     Dates: start: 20150824
  7. INEXIUM /01479302/ [Concomitant]
     Active Substance: ESOMEPRAZOLE MAGNESIUM
     Dosage: 20 MG, DAILY
     Dates: start: 20150824
  8. VENTOLINE /00139501/ [Concomitant]
     Active Substance: ALBUTEROL
     Dosage: UNK, AS NEEDED
  9. AUGMENTIN [Suspect]
     Active Substance: AMOXICILLIN\CLAVULANATE POTASSIUM
     Dosage: 1 G, 3X/DAY
     Route: 042
     Dates: start: 20160527, end: 20160530
  10. ORACILLIN /00001802/ [Concomitant]
     Active Substance: PENICILLIN V POTASSIUM
  11. LEVOTHYROX [Concomitant]
     Active Substance: LEVOTHYROXINE
     Dosage: 75 UG, DAILY
     Dates: start: 20150824
  12. ISENTRESS [Concomitant]
     Active Substance: RALTEGRAVIR POTASSIUM
     Dosage: 400 MG, 2X/DAY
     Dates: start: 20150824
  13. BRICANYL [Suspect]
     Active Substance: TERBUTALINE SULFATE
     Dosage: UNK
     Route: 055
     Dates: start: 20160527, end: 20160530
  14. RETROVIR [Concomitant]
     Active Substance: ZIDOVUDINE
  15. CALCIDOSE VITAMINE D [Concomitant]
     Active Substance: CALCIUM\CHOLECALCIFEROL
     Dosage: 500 MG, 3X/DAY
     Dates: start: 20150824
  16. TRUVADA [Concomitant]
     Active Substance: EMTRICITABINE\TENOFOVIR DISOPROXIL FUMARATE
     Dosage: 1 DF, DAILY
     Dates: start: 20150824
  17. TAZOCILLINE [Suspect]
     Active Substance: PIPERACILLIN SODIUM\TAZOBACTAM SODIUM
     Dosage: UNK
     Route: 042
     Dates: start: 20160528
  18. XATRAL [Concomitant]
     Active Substance: ALFUZOSIN
     Dosage: 10 MG, DAILY
     Dates: start: 20150824
  19. UN ALFA [Concomitant]
     Active Substance: ALFACALCIDOL
     Dosage: 1 UG, DAILY
     Dates: start: 20150824
  20. URBANYL [Suspect]
     Active Substance: CLOBAZAM
     Dosage: 10 MG, 1X/DAY
     Route: 048
  21. COUMADINE [Concomitant]
     Active Substance: WARFARIN SODIUM
     Dosage: 2 MG, DAILY
     Dates: start: 20150824

REACTIONS (6)
  - Hepatocellular injury [Recovering/Resolving]
  - Inflammation [Recovered/Resolved]
  - Rhabdomyolysis [Recovered/Resolved]
  - Acute kidney injury [Recovered/Resolved]
  - Lactic acidosis [Recovered/Resolved]
  - Cholestasis [Recovering/Resolving]

NARRATIVE: CASE EVENT DATE: 20160527
